FAERS Safety Report 14343096 (Version 1)
Quarter: 2017Q4

REPORT INFORMATION
  Report Type: Spontaneous
  Country: US (occurrence: US)
  Receive Date: 20171231
  Receipt Date: 20171231
  Transmission Date: 20180321
  Serious: Yes (Disabling, Other)
  Sender: FDA-Public Use
  Company Number: None

PATIENT
  Sex: Male
  Weight: 112.5 kg

DRUGS (11)
  1. VITRON C WITH IRON [Concomitant]
  2. TAMSULOSIN [Concomitant]
     Active Substance: TAMSULOSIN
  3. NEXIUM [Suspect]
     Active Substance: ESOMEPRAZOLE MAGNESIUM
  4. VIBERZI [Concomitant]
     Active Substance: ELUXADOLINE
  5. OMEPRAZOLE. [Suspect]
     Active Substance: OMEPRAZOLE
     Indication: HIATUS HERNIA
     Dosage: ?          QUANTITY:1 CAPSULE(S);?
     Route: 048
  6. VITAMIN D3 [Concomitant]
     Active Substance: CHOLECALCIFEROL
  7. PRESERVISION AREDS 2 [Concomitant]
     Active Substance: MINERALS\VITAMINS
  8. LISINOPRIL. [Concomitant]
     Active Substance: LISINOPRIL
  9. AMLODIPINE [Concomitant]
     Active Substance: AMLODIPINE BESYLATE
  10. MENS OVER 50 ONE A DAY VITAMIN [Concomitant]
  11. PANTOPRAZOLE [Suspect]
     Active Substance: PANTOPRAZOLE
     Route: 048

REACTIONS (3)
  - Haematochezia [None]
  - Anaemia [None]
  - Flatulence [None]

NARRATIVE: CASE EVENT DATE: 20160430
